FAERS Safety Report 12926889 (Version 1)
Quarter: 2016Q4

REPORT INFORMATION
  Report Type: Report from Study
  Country: US (occurrence: US)
  Receive Date: 20161108
  Receipt Date: 20161108
  Transmission Date: 20170207
  Serious: Yes (Other)
  Sender: FDA-Public Use
  Company Number: US-CONCORDIA PHARMACEUTICALS INC.-GSH201611-005629

PATIENT
  Sex: Female

DRUGS (2)
  1. HUMIRA [Suspect]
     Active Substance: ADALIMUMAB
     Indication: COLITIS ULCERATIVE
     Route: 058
     Dates: start: 2015
  2. PLAQUENIL [Suspect]
     Active Substance: HYDROXYCHLOROQUINE SULFATE
     Indication: ARTHRITIS
     Route: 065

REACTIONS (10)
  - Purulent discharge [Unknown]
  - Skin ulcer [Unknown]
  - Acne [Not Recovered/Not Resolved]
  - Ear lobe infection [Not Recovered/Not Resolved]
  - Localised oedema [Not Recovered/Not Resolved]
  - Rash pruritic [Not Recovered/Not Resolved]
  - Erythema [Not Recovered/Not Resolved]
  - Rash papular [Not Recovered/Not Resolved]
  - Stomatitis [Unknown]
  - Skin exfoliation [Not Recovered/Not Resolved]

NARRATIVE: CASE EVENT DATE: 2015
